FAERS Safety Report 21160682 (Version 1)
Quarter: 2022Q3

REPORT INFORMATION
  Report Type: Spontaneous
  Country: ES (occurrence: ES)
  Receive Date: 20220802
  Receipt Date: 20220802
  Transmission Date: 20221026
  Serious: Yes (Other)
  Sender: FDA-Public Use
  Company Number: None

PATIENT
  Sex: Female

DRUGS (16)
  1. CLOBAZAM [Suspect]
     Active Substance: CLOBAZAM
     Indication: Epilepsy
  2. PHENYTOIN SODIUM [Suspect]
     Active Substance: PHENYTOIN SODIUM
     Indication: Epilepsy
  3. TOPIRAMATE [Suspect]
     Active Substance: TOPIRAMATE
     Indication: Epilepsy
  4. VIGABATRIN [Suspect]
     Active Substance: VIGABATRIN
     Indication: Epilepsy
  5. CARBAMAZEPINE [Suspect]
     Active Substance: CARBAMAZEPINE
     Indication: Epilepsy
  6. DIAZEPAM [Suspect]
     Active Substance: DIAZEPAM
     Indication: Epilepsy
  7. ETHOSUXIMIDE [Suspect]
     Active Substance: ETHOSUXIMIDE
     Indication: Epilepsy
  8. KEPPRA [Suspect]
     Active Substance: LEVETIRACETAM
     Indication: Epilepsy
  9. LAMOTRIGINE [Suspect]
     Active Substance: LAMOTRIGINE
     Indication: Epilepsy
  10. OXCARBAZEPINE [Suspect]
     Active Substance: OXCARBAZEPINE
     Indication: Epilepsy
  11. PERAMPANEL [Suspect]
     Active Substance: PERAMPANEL
     Indication: Epilepsy
     Dosage: UNK
  12. PHENOBARBITAL [Suspect]
     Active Substance: PHENOBARBITAL
     Indication: Epilepsy
  13. SULTHIAME [Suspect]
     Active Substance: SULTHIAME
     Indication: Epilepsy
  14. VIMPAT [Suspect]
     Active Substance: LACOSAMIDE
     Indication: Epilepsy
  15. VALPROATE [Suspect]
     Active Substance: VALPROIC ACID
     Indication: Epilepsy
  16. ZONISAMIDE [Suspect]
     Active Substance: ZONISAMIDE
     Indication: Epilepsy

REACTIONS (3)
  - Multiple-drug resistance [Unknown]
  - Status epilepticus [Unknown]
  - Seizure [Unknown]
